FAERS Safety Report 10656533 (Version 1)
Quarter: 2014Q4

REPORT INFORMATION
  Report Type: Spontaneous
  Country: MX (occurrence: MX)
  Receive Date: 20141216
  Receipt Date: 20141216
  Transmission Date: 20150529
  Serious: Yes (Disabling)
  Sender: FDA-Public Use
  Company Number: MX-ELI_LILLY_AND_COMPANY-MX201412003771

PATIENT
  Age: 38 Year
  Sex: Male
  Weight: 54 kg

DRUGS (1)
  1. HUMALOG [Suspect]
     Active Substance: INSULIN LISPRO
     Indication: TYPE 2 DIABETES MELLITUS
     Dosage: 20 U, BID
     Route: 065
     Dates: start: 20141028

REACTIONS (2)
  - Sensory loss [Unknown]
  - Localised infection [Unknown]

NARRATIVE: CASE EVENT DATE: 20141120
